FAERS Safety Report 20698322 (Version 1)
Quarter: 2022Q2

REPORT INFORMATION
  Report Type: Spontaneous
  Country: SE (occurrence: SE)
  Receive Date: 20220412
  Receipt Date: 20220412
  Transmission Date: 20220720
  Serious: Yes (Other)
  Sender: FDA-Public Use
  Company Number: None

PATIENT
  Age: 78 Year
  Sex: Male

DRUGS (2)
  1. ASACOL [Suspect]
     Active Substance: MESALAMINE
     Indication: Colitis microscopic
     Dosage: UNK
     Route: 065
     Dates: start: 20211019
  2. PRADAXA [Concomitant]
     Active Substance: DABIGATRAN ETEXILATE MESYLATE
     Dosage: UNK

REACTIONS (1)
  - Thrombocytopenic purpura [Unknown]

NARRATIVE: CASE EVENT DATE: 20211022
